FAERS Safety Report 4477201-X (Version None)
Quarter: 2004Q4

REPORT INFORMATION
  Report Type: 
  Country: None (occurrence: None)
  Receive Date: 20041018
  Receipt Date: 20041005
  Transmission Date: 20050328
  Serious: Yes (Hospitalization)
  Sender: FDA-Public Use
  Company Number: US-MERCK-0410USA00739

PATIENT
  Age: 56 Year
  Sex: Male

DRUGS (3)
  1. LOTREL [Concomitant]
     Route: 065
  2. VIOXX [Suspect]
     Indication: PAIN
     Route: 048
     Dates: start: 20030101, end: 20041001
  3. VIOXX [Suspect]
     Indication: INFLAMMATION
     Route: 048
     Dates: start: 20030101, end: 20041001

REACTIONS (1)
  - MYOCARDIAL INFARCTION [None]
